FAERS Safety Report 4280071-6 (Version None)
Quarter: 2004Q1

REPORT INFORMATION
  Report Type: 
  Country: None (occurrence: None)
  Receive Date: 20040123
  Receipt Date: 20040115
  Transmission Date: 20041129
  Serious: Yes (Hospitalization)
  Sender: FDA-Public Use
  Company Number: 2003-02-1084

PATIENT
  Age: 59 Year
  Sex: Female

DRUGS (2)
  1. NASONEX [Suspect]
     Indication: UPPER RESPIRATORY TRACT INFECTION
     Dosage: 2 DOSES QD NASAL SPRAY
     Dates: start: 20021012, end: 20021031
  2. DOXYCYCLINE [Concomitant]

REACTIONS (5)
  - AGEUSIA [None]
  - ANOSMIA [None]
  - DRUG INEFFECTIVE [None]
  - NASAL CONGESTION [None]
  - POSTNASAL DRIP [None]
